FAERS Safety Report 18876256 (Version 1)
Quarter: 2021Q1

REPORT INFORMATION
  Report Type: Spontaneous
  Country: IT (occurrence: IT)
  Receive Date: 20210211
  Receipt Date: 20210211
  Transmission Date: 20210420
  Serious: Yes (Other)
  Sender: FDA-Public Use
  Company Number: IT-TEVA-2021-IT-1877115

PATIENT
  Age: 61 Year
  Sex: Male

DRUGS (9)
  1. PREDNISONE. [Suspect]
     Active Substance: PREDNISONE
     Dosage: 30 MILLIGRAM DAILY;
     Route: 065
     Dates: start: 201610
  2. PACLITAXEL. [Suspect]
     Active Substance: PACLITAXEL
     Indication: KAPOSI^S SARCOMA
     Dosage: 14.2857 MG/M2 DAILY; 13 ADMINISTRATIONS
     Route: 042
  3. PYRIDOSTIGMINE [Concomitant]
     Active Substance: PYRIDOSTIGMINE
     Dosage: 360 MILLIGRAM DAILY;
     Route: 065
  4. PREDNISONE. [Suspect]
     Active Substance: PREDNISONE
     Dosage: 62.5 MILLIGRAM DAILY; 0.63 MG/KG/DAY
     Route: 065
     Dates: start: 201512
  5. PREDNISONE. [Suspect]
     Active Substance: PREDNISONE
     Dosage: 50 MILLIGRAM DAILY; 0.53 MG/KG/DAY
     Route: 065
  6. PYRIDOSTIGMINE [Concomitant]
     Active Substance: PYRIDOSTIGMINE
     Indication: MYASTHENIA GRAVIS
     Dosage: 240 MILLIGRAM DAILY;
     Route: 065
     Dates: start: 201510
  7. PREDNISONE. [Suspect]
     Active Substance: PREDNISONE
     Indication: MYASTHENIA GRAVIS
     Dosage: 65 MILLIGRAM DAILY; 0.60 MG/KG/DAY
     Route: 065
     Dates: start: 201510
  8. AZATHIOPRINE. [Suspect]
     Active Substance: AZATHIOPRINE
     Indication: MYASTHENIA GRAVIS
     Route: 065
     Dates: start: 201512
  9. AZATHIOPRINE. [Suspect]
     Active Substance: AZATHIOPRINE
     Route: 065
     Dates: start: 201610

REACTIONS (4)
  - Kaposi^s sarcoma [Recovering/Resolving]
  - Axonal neuropathy [Unknown]
  - Pulmonary embolism [Unknown]
  - Human herpesvirus 8 infection [Recovering/Resolving]

NARRATIVE: CASE EVENT DATE: 201610
